FAERS Safety Report 10196771 (Version 2)
Quarter: 2014Q2

REPORT INFORMATION
  Report Type: Report from Study
  Country: JP (occurrence: JP)
  Receive Date: 20140527
  Receipt Date: 20140626
  Transmission Date: 20141212
  Serious: Yes (Hospitalization)
  Sender: FDA-Public Use
  Company Number: JP-SA-2014SA065443

PATIENT
  Age: 67 Year
  Sex: Male
  Weight: 56.3 kg

DRUGS (11)
  1. THYMOGLOBULINE [Suspect]
     Indication: APLASTIC ANAEMIA
     Route: 042
     Dates: start: 20110427, end: 20110501
  2. MEROPENEM [Suspect]
     Indication: FEBRILE NEUTROPENIA
     Route: 065
     Dates: start: 20110520, end: 20110608
  3. NEORAL [Concomitant]
     Indication: APLASTIC ANAEMIA
     Dates: start: 20110427
  4. SOL-MELCORT [Concomitant]
     Indication: APLASTIC ANAEMIA
     Dates: start: 20110427, end: 20110501
  5. SOL-MELCORT [Concomitant]
     Indication: ALLERGY PROPHYLAXIS
     Dates: start: 20110427, end: 20110501
  6. PREDNISOLONE [Concomitant]
     Indication: APLASTIC ANAEMIA
     Dates: start: 20110502, end: 20110531
  7. CRAVIT [Concomitant]
     Indication: INFECTION PROPHYLAXIS
     Dates: start: 20110428, end: 20110520
  8. ITRIZOLE [Concomitant]
     Indication: INFECTION PROPHYLAXIS
     Dates: start: 20110428, end: 20111005
  9. BAKTAR [Concomitant]
     Indication: INFECTION PROPHYLAXIS
     Dates: start: 20110429, end: 20110810
  10. OMEPRAL [Concomitant]
     Indication: PROPHYLAXIS AGAINST GASTROINTESTINAL ULCER
     Dates: start: 20110507
  11. GRANULOCYTE COLONY-STIMULATING FACTOR NOS [Concomitant]
     Indication: APLASTIC ANAEMIA
     Dates: start: 20110422, end: 20110619

REACTIONS (3)
  - Febrile neutropenia [Recovered/Resolved]
  - Pneumonia cytomegaloviral [Recovered/Resolved]
  - Hepatic function abnormal [Recovered/Resolved]
